FAERS Safety Report 17988000 (Version 1)
Quarter: 2020Q3

REPORT INFORMATION
  Report Type: Spontaneous
  Country: CA (occurrence: CA)
  Receive Date: 20200707
  Receipt Date: 20200707
  Transmission Date: 20201103
  Serious: Yes (Hospitalization)
  Sender: FDA-Public Use
  Company Number: CA-TEVA-2020-CA-1796901

PATIENT
  Age: 65 Year
  Sex: Male

DRUGS (9)
  1. FUROSEMIDE INJ USP [Concomitant]
     Active Substance: FUROSEMIDE
     Dosage: LIQUID INTRAMUSCULAR
  2. HYDROMORPH CONTIN [Concomitant]
     Active Substance: HYDROMORPHONE
  3. PACKED RED BLOOD CELLS [Concomitant]
     Active Substance: HUMAN RED BLOOD CELL
  4. RABEPRAZOLE [Concomitant]
     Active Substance: RABEPRAZOLE
  5. PROCHLORPERAZINE. [Concomitant]
     Active Substance: PROCHLORPERAZINE
  6. DOXORUBICIN INJECTION [Suspect]
     Active Substance: DOXORUBICIN
     Indication: SARCOMA
     Route: 042
  7. GABAPENTIN. [Concomitant]
     Active Substance: GABAPENTIN
  8. LORAZEPAM. [Concomitant]
     Active Substance: LORAZEPAM
  9. NAPROXEN. [Concomitant]
     Active Substance: NAPROXEN

REACTIONS (2)
  - Anaemia [Unknown]
  - Febrile neutropenia [Unknown]
